FAERS Safety Report 9878121 (Version 1)
Quarter: 2014Q1

REPORT INFORMATION
  Report Type: Spontaneous
  Country: US (occurrence: None)
  Receive Date: 20140204
  Receipt Date: 20140204
  Transmission Date: 20141002
  Serious: Yes (Hospitalization)
  Sender: FDA-Public Use
  Company Number: 2014-US-000889

PATIENT
  Age: 28 Year
  Sex: Male

DRUGS (1)
  1. XYREM (SODIUM OXYBATE) ORAL SOLUTION, 500MG/ML [Suspect]
     Indication: PRODUCT USED FOR UNKNOWN INDICATION
     Route: 048
     Dates: start: 201311, end: 201401

REACTIONS (4)
  - Intentional overdose [None]
  - Aspiration [None]
  - Suicide attempt [None]
  - Respiratory depression [None]
